FAERS Safety Report 8927682 (Version 2)
Quarter: 2012Q4

REPORT INFORMATION
  Report Type: 
  Country: BR (occurrence: BR)
  Receive Date: 20121127
  Receipt Date: 20121203
  Transmission Date: 20130627
  Serious: Yes (Other)
  Sender: FDA-Public Use
  Company Number: PHHY2012BR105428

PATIENT
  Sex: Female
  Weight: 78 kg

DRUGS (5)
  1. MERIGEST [Suspect]
     Indication: POSTMENOPAUSE
     Dosage: 0.7 mg,1 tablet oral at night
  2. ANGELIQ [Suspect]
     Dosage: 2 mg, 1 tablet oral at night
     Route: 048
  3. FLUOXETINE [Concomitant]
     Indication: ANXIETY
     Dosage: 20 mg, every night
     Route: 048
  4. LEVOID [Concomitant]
     Indication: HYPOTHYROIDISM
     Dosage: 25 ug, 1 tablet daily
     Route: 048
  5. OMNARIS [Concomitant]
     Indication: RHINITIS
     Dosage: 50 ug, twice at morning

REACTIONS (10)
  - Carotid artery disease [Not Recovered/Not Resolved]
  - Cardiomegaly [Recovered/Resolved]
  - Cardiac murmur [Not Recovered/Not Resolved]
  - Arrhythmia [Not Recovered/Not Resolved]
  - Asthma [Not Recovered/Not Resolved]
  - Haemorrhage [Not Recovered/Not Resolved]
  - Secretion discharge [Recovering/Resolving]
  - Influenza [Recovered/Resolved]
  - Cough [Not Recovered/Not Resolved]
  - Feeling hot [Not Recovered/Not Resolved]
